FAERS Safety Report 21166327 (Version 2)
Quarter: 2022Q3

REPORT INFORMATION
  Report Type: Report from Study
  Country: US (occurrence: US)
  Receive Date: 20220803
  Receipt Date: 20220906
  Transmission Date: 20221027
  Serious: Yes (Hospitalization)
  Sender: FDA-Public Use
  Company Number: US-GBT-014752

PATIENT
  Age: 38 Year
  Sex: Female

DRUGS (21)
  1. OXBRYTA [Suspect]
     Active Substance: VOXELOTOR
     Indication: Sickle cell anaemia
     Dates: start: 20200730
  2. ACETAMINOPHEN [Concomitant]
     Active Substance: ACETAMINOPHEN
     Indication: Sickle cell disease
     Route: 048
     Dates: start: 20200810, end: 20200810
  3. ACETAMINOPHEN [Concomitant]
     Active Substance: ACETAMINOPHEN
     Indication: Sickle cell disease
     Route: 048
     Dates: start: 20200811, end: 20200818
  4. FOLIC ACID [Concomitant]
     Active Substance: FOLIC ACID
     Indication: Sickle cell disease
     Route: 048
     Dates: start: 20150309
  5. HYDROMORPHONE [Concomitant]
     Active Substance: HYDROMORPHONE
     Indication: Sickle cell disease
     Dosage: EVERY 10 MINUTES AS NEEDED
     Route: 042
     Dates: start: 20200811, end: 20200814
  6. HYDROMORPHONE [Concomitant]
     Active Substance: HYDROMORPHONE
     Indication: Sickle cell disease
     Dosage: 3 TIMES
     Route: 042
     Dates: start: 20200811, end: 20200811
  7. HYDROMORPHONE [Concomitant]
     Active Substance: HYDROMORPHONE
     Indication: Sickle cell disease
     Route: 048
     Dates: start: 20200816, end: 20200817
  8. IBUPROFEN [Concomitant]
     Active Substance: IBUPROFEN
     Indication: Sickle cell disease
     Dosage: PRN
     Route: 048
     Dates: start: 20200817, end: 20200818
  9. ketorolac (Toradol) [Concomitant]
     Indication: Sickle cell disease
     Dosage: DOSAGETIME INTERVAL: AS NECESSARY: 30 MG/ML
     Route: 042
     Dates: start: 20200812, end: 20200815
  10. MORPHINE [Concomitant]
     Active Substance: MORPHINE
     Indication: Sickle cell disease
     Dosage: DOSAGE: 4 MG/ML 3 TIMES
     Route: 042
     Dates: start: 20200810, end: 20200810
  11. MORPHINE [Concomitant]
     Active Substance: MORPHINE
     Indication: Sickle cell disease
     Route: 042
     Dates: start: 20200810, end: 20200810
  12. ACETAMINOPHEN\HYDROCODONE [Concomitant]
     Active Substance: ACETAMINOPHEN\HYDROCODONE
     Indication: Sickle cell disease
     Dosage: 5-325 MG Q4H
     Route: 048
     Dates: start: 20180108, end: 20200818
  13. IBUPROFEN [Concomitant]
     Active Substance: IBUPROFEN
     Indication: Sickle cell disease
     Dosage: Q6H
     Route: 048
     Dates: start: 20150429
  14. HYDROMORPHONE [Concomitant]
     Active Substance: HYDROMORPHONE
     Indication: Sickle cell disease
     Route: 042
     Dates: start: 20200810, end: 20200811
  15. HYDROMORPHONE [Concomitant]
     Active Substance: HYDROMORPHONE
     Indication: Sickle cell disease
     Dosage: CONTINUOUS
     Route: 042
     Dates: start: 20200811, end: 20200812
  16. HYDROMORPHONE [Concomitant]
     Active Substance: HYDROMORPHONE
     Indication: Sickle cell disease
     Dosage: CONTINUOUS
     Route: 042
     Dates: start: 20200812, end: 20200814
  17. HYDROMORPHONE [Concomitant]
     Active Substance: HYDROMORPHONE
     Indication: Sickle cell disease
     Dosage: CONTINUOUS
     Route: 042
     Dates: start: 20200814, end: 20200814
  18. HYDROMORPHONE [Concomitant]
     Active Substance: HYDROMORPHONE
     Indication: Sickle cell disease
     Dosage: Q2H
     Route: 042
     Dates: start: 20200814, end: 20200817
  19. HYDROMORPHONE [Concomitant]
     Active Substance: HYDROMORPHONE
     Indication: Sickle cell disease
     Route: 048
     Dates: start: 20200817, end: 20200817
  20. HYDROMORPHONE [Concomitant]
     Active Substance: HYDROMORPHONE
     Indication: Sickle cell disease
     Route: 048
     Dates: start: 20200817, end: 20200818
  21. HYDROXYUREA [Concomitant]
     Active Substance: HYDROXYUREA

REACTIONS (2)
  - Sickle cell anaemia with crisis [Recovered/Resolved]
  - Pneumonia [Recovered/Resolved]

NARRATIVE: CASE EVENT DATE: 20200810
